FAERS Safety Report 10204578 (Version 1)
Quarter: 2014Q2

REPORT INFORMATION
  Report Type: Report from Study
  Country: US (occurrence: US)
  Receive Date: 20140529
  Receipt Date: 20140529
  Transmission Date: 20141212
  Serious: Yes (Hospitalization, Disabling, Other)
  Sender: FDA-Public Use
  Company Number: US-ABBVIE-14P-163-1239882-00

PATIENT
  Age: 60 Year
  Sex: Female
  Weight: 63.56 kg

DRUGS (6)
  1. HUMIRA [Suspect]
     Indication: PSORIASIS
     Dosage: PFS
     Route: 058
     Dates: start: 2004, end: 2006
  2. HUMIRA [Suspect]
     Indication: PSORIATIC ARTHROPATHY
     Dosage: PENS
     Route: 058
     Dates: start: 2006, end: 20131129
  3. ALLERGY INJECTIONS [Concomitant]
     Indication: HYPERSENSITIVITY
     Dates: end: 201404
  4. BENICAR [Concomitant]
     Indication: HYPERTENSION
     Dates: end: 201401
  5. BYSTOLIC [Concomitant]
     Indication: HYPERTENSION
  6. ZYRTEC [Concomitant]
     Indication: HYPERSENSITIVITY
     Dates: end: 201404

REACTIONS (27)
  - Polyp [Recovered/Resolved]
  - Cerebrovascular accident [Recovered/Resolved with Sequelae]
  - Brain neoplasm [Recovered/Resolved]
  - Benign neoplasm [Recovered/Resolved]
  - Fall [Recovered/Resolved]
  - Head injury [Recovered/Resolved]
  - Skeletal injury [Recovered/Resolved]
  - Contusion [Recovered/Resolved]
  - Syncope [Recovered/Resolved]
  - Tongue injury [Recovered/Resolved]
  - Convulsion [Recovered/Resolved]
  - Generalised tonic-clonic seizure [Recovered/Resolved]
  - Incoherent [Recovered/Resolved]
  - Confusional state [Recovered/Resolved]
  - Amnesia [Not Recovered/Not Resolved]
  - Dizziness [Not Recovered/Not Resolved]
  - Fall [Not Recovered/Not Resolved]
  - Convulsion [Not Recovered/Not Resolved]
  - Vision blurred [Not Recovered/Not Resolved]
  - Drug hypersensitivity [Unknown]
  - Nausea [Not Recovered/Not Resolved]
  - Vomiting [Not Recovered/Not Resolved]
  - Weight decreased [Not Recovered/Not Resolved]
  - Rash pruritic [Not Recovered/Not Resolved]
  - Psoriasis [Not Recovered/Not Resolved]
  - Stress at work [Unknown]
  - Convulsion [Not Recovered/Not Resolved]
